FAERS Safety Report 5610602-2 (Version None)
Quarter: 2008Q1

REPORT INFORMATION
  Report Type: 
  Country: None (occurrence: None)
  Receive Date: 20080201
  Receipt Date: 20080128
  Transmission Date: 20080703
  Serious: Yes (Other)
  Sender: FDA-Public Use
  Company Number: US-JNJFOC-20080107549

PATIENT
  Sex: Female
  Weight: 66.68 kg

DRUGS (5)
  1. REMICADE [Suspect]
     Route: 042
  2. REMICADE [Suspect]
     Route: 042
  3. REMICADE [Suspect]
     Indication: CROHN'S DISEASE
     Route: 042
  4. 5 ASA [Concomitant]
  5. ANTIBIOTICS [Concomitant]

REACTIONS (2)
  - JOINT SWELLING [None]
  - NASOPHARYNGITIS [None]
